FAERS Safety Report 5975249-7 (Version None)
Quarter: 2008Q4

REPORT INFORMATION
  Report Type: 
  Country: None (occurrence: None)
  Receive Date: 20081202
  Receipt Date: 20081121
  Transmission Date: 20090506
  Serious: Yes (Hospitalization, Other)
  Sender: FDA-Public Use
  Company Number: US-ROCHE-552295

PATIENT
  Sex: Male
  Weight: 70.3 kg

DRUGS (2)
  1. ACCUTANE [Suspect]
     Indication: ACNE
     Route: 065
     Dates: start: 20030416, end: 20030423
  2. ACCUTANE [Suspect]
     Route: 065
     Dates: start: 20030425, end: 20030731

REACTIONS (15)
  - ALOPECIA [None]
  - ANXIETY [None]
  - CHEST PAIN [None]
  - COLITIS [None]
  - COLITIS ULCERATIVE [None]
  - DEPRESSION [None]
  - DRY SKIN [None]
  - ERYTHEMA NODOSUM [None]
  - HEPATIC VEIN THROMBOSIS [None]
  - INFLAMMATORY BOWEL DISEASE [None]
  - MYALGIA [None]
  - PERICARDITIS [None]
  - PERITONITIS [None]
  - SMALL INTESTINAL PERFORATION [None]
  - SPLENIC INFARCTION [None]
